FAERS Safety Report 17952075 (Version 1)
Quarter: 2020Q2

REPORT INFORMATION
  Report Type: Spontaneous
  Country: CN (occurrence: CN)
  Receive Date: 20200626
  Receipt Date: 20200626
  Transmission Date: 20200714
  Serious: Yes (Other)
  Sender: FDA-Public Use
  Company Number: NVSC2020CN178812

PATIENT
  Age: 80 Year
  Sex: Female

DRUGS (2)
  1. TEGRETOL [Suspect]
     Active Substance: CARBAMAZEPINE
     Dosage: HALF A TABLET QD
     Route: 048
  2. TEGRETOL [Suspect]
     Active Substance: CARBAMAZEPINE
     Indication: TRIGEMINAL NEURALGIA
     Dosage: ? TABLET QD
     Route: 048

REACTIONS (3)
  - Prescription drug used without a prescription [Unknown]
  - Tooth socket haemorrhage [Unknown]
  - Incorrect dose administered [Unknown]
